FAERS Safety Report 7424186-X (Version None)
Quarter: 2011Q2

REPORT INFORMATION
  Report Type: 
  Country: None (occurrence: None)
  Receive Date: 20110419
  Receipt Date: 20110408
  Transmission Date: 20111010
  Serious: No
  Sender: FDA-Public Use
  Company Number: BE-MERCK-1102BEL00003

PATIENT
  Age: 56 Year
  Sex: Female
  Weight: 61 kg

DRUGS (4)
  1. DEXAMETHASONE [Concomitant]
     Route: 042
     Dates: start: 20110131, end: 20110131
  2. CISPLATIN [Concomitant]
     Indication: NEOPLASM MALIGNANT
     Route: 042
     Dates: start: 20110131, end: 20110131
  3. EMEND [Suspect]
     Indication: PROPHYLAXIS OF NAUSEA AND VOMITING
     Route: 048
     Dates: start: 20110131, end: 20110131
  4. TROPISETRON HYDROCHLORIDE [Concomitant]
     Route: 042
     Dates: start: 20110131, end: 20110131

REACTIONS (6)
  - BLOOD PRESSURE DECREASED [None]
  - ABDOMINAL PAIN UPPER [None]
  - NAUSEA [None]
  - RASH [None]
  - HYPERSENSITIVITY [None]
  - ERYTHEMA [None]
